FAERS Safety Report 8138443-5 (Version None)
Quarter: 2012Q1

REPORT INFORMATION
  Report Type: 
  Country: None (occurrence: None)
  Receive Date: 20120215
  Receipt Date: 20120207
  Transmission Date: 20120608
  Serious: Yes (Death)
  Sender: FDA-Public Use
  Company Number: RU-JNJFOC-20120204690

PATIENT

DRUGS (1)
  1. XARELTO [Suspect]
     Indication: ORTHOPEDIC PROCEDURE
     Route: 048

REACTIONS (1)
  - DEATH [None]
